FAERS Safety Report 17002894 (Version 2)
Quarter: 2019Q4

REPORT INFORMATION
  Report Type: Spontaneous
  Country: GB (occurrence: GB)
  Receive Date: 20191107
  Receipt Date: 20191120
  Transmission Date: 20200122
  Serious: Yes (Hospitalization)
  Sender: FDA-Public Use
  Company Number: GB-AUROBINDO-AUR-APL-2019-070674

PATIENT
  Sex: Male

DRUGS (3)
  1. GABAPENTIN MILPHARM FILM-COATED TABLET [Suspect]
     Active Substance: GABAPENTIN
     Dosage: 2 DOSAGE FORM, ONCE A DAY
     Route: 065
     Dates: start: 20180717, end: 20180717
  2. GABAPENTIN MILPHARM FILM-COATED TABLET [Suspect]
     Active Substance: GABAPENTIN
     Dosage: 3 DOSAGE FORM, ONCE A DAY
     Route: 065
     Dates: start: 20180718
  3. GABAPENTIN MILPHARM FILM-COATED TABLET [Suspect]
     Active Substance: GABAPENTIN
     Indication: NERVE INJURY
     Dosage: 1 DOSAGE FORM, ONCE A DAY
     Route: 065
     Dates: start: 20180716, end: 20180716

REACTIONS (8)
  - Dysarthria [Unknown]
  - Confusional state [Unknown]
  - Asthenia [Unknown]
  - Somnolence [Unknown]
  - Hepatomegaly [Unknown]
  - Dyspnoea [Unknown]
  - Blood calcium abnormal [Unknown]
  - Pain [Unknown]

NARRATIVE: CASE EVENT DATE: 20180720
